FAERS Safety Report 18718712 (Version 1)
Quarter: 2021Q1

REPORT INFORMATION
  Report Type: Spontaneous
  Country: IT (occurrence: IT)
  Receive Date: 20210108
  Receipt Date: 20210108
  Transmission Date: 20210419
  Serious: Yes (Death)
  Sender: FDA-Public Use
  Company Number: IT-AMNEAL PHARMACEUTICALS-2020-AMRX-04156

PATIENT

DRUGS (3)
  1. CYCLOPHOSPHAMIDE. [Suspect]
     Active Substance: CYCLOPHOSPHAMIDE
     Indication: ACUTE LEUKAEMIA
     Dosage: UNK
     Route: 065
  2. THIOTEPA. [Concomitant]
     Active Substance: THIOTEPA
     Indication: ACUTE LEUKAEMIA
     Dosage: UNK
     Route: 065
  3. FLUDARABINE [Concomitant]
     Active Substance: FLUDARABINE PHOSPHATE
     Indication: ACUTE LEUKAEMIA
     Dosage: UNK
     Route: 065

REACTIONS (1)
  - Respiratory distress [Fatal]
